FAERS Safety Report 8121226-X (Version None)
Quarter: 2012Q1

REPORT INFORMATION
  Report Type: 
  Country: None (occurrence: None)
  Receive Date: 20120203
  Receipt Date: 20120120
  Transmission Date: 20120608
  Serious: Yes (Other)
  Sender: FDA-Public Use
  Company Number: 2011MA014130

PATIENT
  Age: 21 Year
  Sex: Female

DRUGS (4)
  1. TERBUTALINE [Concomitant]
  2. LAMICTAL [Concomitant]
  3. CETIRIZINE [Suspect]
     Indication: OEDEMA PERIPHERAL
     Dosage: 10 MG; QD; PO
     Route: 048
     Dates: start: 20011116, end: 20110620
  4. CETIRIZINE [Suspect]
     Indication: SWELLING FACE
     Dosage: 10 MG; QD; PO
     Route: 048
     Dates: start: 20011116, end: 20110620

REACTIONS (3)
  - EPILEPSY [None]
  - OFF LABEL USE [None]
  - COMPLEX PARTIAL SEIZURES [None]
